FAERS Safety Report 15470579 (Version 4)
Quarter: 2018Q4

REPORT INFORMATION
  Report Type: Report from Study
  Country: None (occurrence: CH)
  Receive Date: 20181005
  Receipt Date: 20181025
  Transmission Date: 20190205
  Serious: Yes (Hospitalization, Other)
  Sender: FDA-Public Use
  Company Number: CH-ABBVIE-18P-151-2507341-00

PATIENT
  Age: 74 Year
  Sex: Male

DRUGS (10)
  1. VENETOCLAX. [Suspect]
     Active Substance: VENETOCLAX
     Route: 048
     Dates: start: 20180905
  2. VIDAZA [Concomitant]
     Active Substance: AZACITIDINE
     Indication: PRODUCT USED FOR UNKNOWN INDICATION
     Dosage: RAMPING UP, STARTING WITH 100 MG/DAY FOR THE FIRST CYCLE
     Dates: start: 20180720
  3. VIDAZA [Concomitant]
     Active Substance: AZACITIDINE
     Dosage: 75MG/M2 PER DAY
     Dates: start: 20180910
  4. VENETOCLAX. [Suspect]
     Active Substance: VENETOCLAX
     Dosage: THERAPY PAUSED
     Route: 048
     Dates: start: 20180813, end: 20180905
  5. PREDNISONE. [Concomitant]
     Active Substance: PREDNISONE
     Route: 048
     Dates: start: 20180823, end: 20180828
  6. VENETOCLAX. [Suspect]
     Active Substance: VENETOCLAX
     Indication: ACUTE MYELOID LEUKAEMIA
     Route: 048
     Dates: start: 20180806, end: 20180809
  7. VENETOCLAX. [Suspect]
     Active Substance: VENETOCLAX
     Route: 048
     Dates: start: 20180809, end: 20180811
  8. VENETOCLAX. [Suspect]
     Active Substance: VENETOCLAX
     Route: 048
     Dates: start: 20180812, end: 20180813
  9. PREDNISONE. [Concomitant]
     Active Substance: PREDNISONE
     Indication: PRODUCT USED FOR UNKNOWN INDICATION
     Route: 048
     Dates: start: 20180813, end: 20180823
  10. PREDNISONE. [Concomitant]
     Active Substance: PREDNISONE
     Route: 048
     Dates: start: 20180829

REACTIONS (10)
  - Urinary retention [Unknown]
  - Anaemia [Recovering/Resolving]
  - Thrombocytopenia [Recovering/Resolving]
  - Neutropenia [Recovering/Resolving]
  - Sepsis [Recovered/Resolved]
  - Diarrhoea [Recovered/Resolved]
  - Pancytopenia [Unknown]
  - Coagulopathy [Unknown]
  - Dyspnoea [Unknown]
  - Peripheral arterial occlusive disease [Unknown]

NARRATIVE: CASE EVENT DATE: 20180810
